FAERS Safety Report 23135710 (Version 1)
Quarter: 2023Q4

REPORT INFORMATION
  Report Type: Spontaneous
  Country: GR (occurrence: GR)
  Receive Date: 20231101
  Receipt Date: 20231101
  Transmission Date: 20240110
  Serious: Yes (Other)
  Sender: FDA-Public Use
  Company Number: None

PATIENT
  Age: 49 Year
  Sex: Male

DRUGS (2)
  1. BOTOX [Suspect]
     Active Substance: ONABOTULINUMTOXINA
     Indication: Torticollis
     Dosage: TIME INTERVAL: AS NECESSARY: 30 U/VIAL (TRAPEZIUS MUSCLE)
     Route: 030
     Dates: start: 20230612, end: 20230612
  2. PRAMIPEXOLE [Concomitant]
     Active Substance: PRAMIPEXOLE
     Indication: Parkinson^s disease

REACTIONS (2)
  - Dropped head syndrome [Recovered/Resolved]
  - Muscle atrophy [Recovered/Resolved]

NARRATIVE: CASE EVENT DATE: 20230626
